FAERS Safety Report 15050402 (Version 3)
Quarter: 2024Q1

REPORT INFORMATION
  Report Type: Spontaneous
  Country: JP (occurrence: JP)
  Receive Date: 20180622
  Receipt Date: 20240205
  Transmission Date: 20240410
  Serious: Yes (Death, Hospitalization, Other)
  Sender: FDA-Public Use
  Company Number: JP-PFIZER INC-2018251932

PATIENT
  Age: 75 Year
  Sex: Female
  Weight: 43.5 kg

DRUGS (1)
  1. METHOTREXATE SODIUM [Suspect]
     Active Substance: METHOTREXATE SODIUM
     Indication: Rheumatoid arthritis
     Dosage: UNK
     Route: 048

REACTIONS (1)
  - Diffuse large B-cell lymphoma [Fatal]
